FAERS Safety Report 9145455 (Version 1)
Quarter: 2013Q1

REPORT INFORMATION
  Report Type: Spontaneous
  Country: US (occurrence: None)
  Receive Date: 20130226
  Receipt Date: 20130226
  Transmission Date: 20140127
  Serious: Yes (Other)
  Sender: FDA-Public Use
  Company Number: None

PATIENT
  Age: 70 Year
  Sex: Female
  Weight: 77.11 kg

DRUGS (1)
  1. LYRICA 50MG TO 100 MGS DAILY EVERGREEN PHARMACY [Suspect]
     Dosage: 1 DOSE 3 PER DAY, PO
     Route: 048
     Dates: start: 20121001, end: 20121225

REACTIONS (7)
  - Sudden onset of sleep [None]
  - Balance disorder [None]
  - Gait disturbance [None]
  - Asthenia [None]
  - Musculoskeletal disorder [None]
  - Pain in extremity [None]
  - Nausea [None]
